FAERS Safety Report 15272664 (Version 2)
Quarter: 2018Q4

REPORT INFORMATION
  Report Type: Spontaneous
  Country: US (occurrence: US)
  Receive Date: 20180813
  Receipt Date: 20181212
  Transmission Date: 20190204
  Serious: Yes (Hospitalization)
  Sender: FDA-Public Use
  Company Number: US-EDGEWELL PERSONAL CARE, LLC-2053640

PATIENT
  Age: 17 Year
  Sex: Male
  Weight: 59.09 kg

DRUGS (2)
  1. CONCERTA [Concomitant]
     Active Substance: METHYLPHENIDATE HYDROCHLORIDE
     Route: 048
  2. BANANA BOAT (AVOBENZONE\HOMOSALATE\OCTOCRYLENE\OXYBENZONE) [Suspect]
     Active Substance: AVOBENZONE\HOMOSALATE\OCTOCRYLENE\OXYBENZONE
     Indication: PROPHYLAXIS AGAINST SOLAR RADIATION
     Route: 061
     Dates: start: 20180803, end: 20180803

REACTIONS (5)
  - Burns first degree [Recovering/Resolving]
  - Pain [Unknown]
  - Sunburn [Recovering/Resolving]
  - Agitation [Unknown]
  - Blister [Unknown]

NARRATIVE: CASE EVENT DATE: 20180803
